FAERS Safety Report 15057099 (Version 3)
Quarter: 2018Q3

REPORT INFORMATION
  Report Type: Spontaneous
  Country: US (occurrence: US)
  Receive Date: 20180624
  Receipt Date: 20180811
  Transmission Date: 20181010
  Serious: Yes (Other)
  Sender: FDA-Public Use
  Company Number: US-JNJFOC-20180612320

PATIENT
  Sex: Male
  Weight: 76.2 kg

DRUGS (3)
  1. ZYTIGA [Suspect]
     Active Substance: ABIRATERONE ACETATE
     Indication: PROSTATE CANCER
     Dosage: ABOUT 4 YEARS
     Route: 048
     Dates: end: 201805
  2. PREDNISONE. [Concomitant]
     Active Substance: PREDNISONE
     Route: 048
  3. METOLAZONE. [Concomitant]
     Active Substance: METOLAZONE
     Route: 048
     Dates: end: 201706

REACTIONS (6)
  - Prostatic specific antigen increased [Recovering/Resolving]
  - Product use in unapproved indication [Unknown]
  - Contusion [Unknown]
  - Body height decreased [Not Recovered/Not Resolved]
  - Drug ineffective [Unknown]
  - Off label use [Unknown]

NARRATIVE: CASE EVENT DATE: 2018
